FAERS Safety Report 22292324 (Version 1)
Quarter: 2023Q2

REPORT INFORMATION
  Report Type: Spontaneous
  Country: FR (occurrence: FR)
  Receive Date: 20230508
  Receipt Date: 20230508
  Transmission Date: 20230721
  Serious: Yes (Hospitalization, Other)
  Sender: FDA-Public Use
  Company Number: FR-DENTSPLY-2023SCDP000135

PATIENT
  Sex: Female

DRUGS (8)
  1. LIDOCAINE HYDROCHLORIDE AND EPINEPHRINE BITARTRATE [Suspect]
     Active Substance: EPINEPHRINE BITARTRATE\LIDOCAINE HYDROCHLORIDE
     Indication: Anaesthesia
     Dosage: 60 MILLIGRAM TOTAL EPINEPHRINE, LIDOCAINE
     Route: 064
     Dates: start: 20230305, end: 20230305
  2. ROPIVACAINE HYDROCHLORIDE [Suspect]
     Active Substance: ROPIVACAINE HYDROCHLORIDE
     Indication: Anaesthesia
     Dosage: 10 MILLILITER PER HOUR
     Route: 064
     Dates: start: 20230305, end: 20230305
  3. CIMETIDINE [Suspect]
     Active Substance: CIMETIDINE
     Indication: Product used for unknown indication
     Dosage: 400 MILLIGRAM TOTAL CIMETIDINE ARROW 200 MG, EFFERVESCENT TABLET
     Route: 064
     Dates: start: 20230305, end: 20230305
  4. OXYTOCIN [Suspect]
     Active Substance: OXYTOCIN
     Indication: Uterine hypotonus
     Dosage: 5 INTERNATIONAL UNIT TOTAL OXYTOCINE EVER PHARMA 5 IU/1 ML, SOLUTION FOR INJECTION
     Route: 064
     Dates: start: 20230305, end: 20230305
  5. TRANDATE [Suspect]
     Active Substance: LABETALOL HYDROCHLORIDE
     Indication: Gestational hypertension
     Dosage: UNK DOSE OF  TRANDATE 200 MG FILM-COATED TABLETS
     Route: 064
     Dates: start: 20230222, end: 20230305
  6. SUFENTANIL [Suspect]
     Active Substance: SUFENTANIL
     Indication: Anaesthesia
     Dosage: 5 MCG/HOUR SUFENTANIL VIATRIS
     Route: 064
     Dates: start: 20230305, end: 20230305
  7. MISOPROSTOL [Suspect]
     Active Substance: MISOPROSTOL
     Indication: Labour induction
     Dosage: 200 MICROGRAM A DAY (50 MCG 4 TIMES PER 24 HOURS) ANGUSTA 25 MICROGRAMS, TABLET
     Route: 064
     Dates: start: 20230303, end: 20230304
  8. ONDANSETRON [Suspect]
     Active Substance: ONDANSETRON
     Indication: Antiemetic supportive care
     Dosage: 4 MILLIGRAM TOTAL SETOFILM 4 MG, FILM ORODISPERSIBLE
     Route: 064
     Dates: start: 20230305, end: 20230305

REACTIONS (1)
  - Cerebral thrombosis [None]

NARRATIVE: CASE EVENT DATE: 20230305
